FAERS Safety Report 6640866-8 (Version None)
Quarter: 2010Q1

REPORT INFORMATION
  Report Type: 
  Country: None (occurrence: None)
  Receive Date: 20100318
  Receipt Date: 20100308
  Transmission Date: 20100710
  Serious: Yes (Other)
  Sender: FDA-Public Use
  Company Number: B0639871A

PATIENT
  Age: 47 Year
  Sex: Female

DRUGS (2)
  1. CLOBETASOL PROPIONATE [Suspect]
     Route: 065
  2. HYDROQUINONE [Suspect]
     Route: 065

REACTIONS (1)
  - SQUAMOUS CELL CARCINOMA [None]
